FAERS Safety Report 19897827 (Version 1)
Quarter: 2021Q3

REPORT INFORMATION
  Report Type: Spontaneous
  Country: US (occurrence: US)
  Receive Date: 20210929
  Receipt Date: 20210929
  Transmission Date: 20211014
  Serious: No
  Sender: FDA-Public Use
  Company Number: US-PFIZER INC-2021303698

PATIENT
  Age: 58 Year
  Sex: Male

DRUGS (1)
  1. SILDENAFIL CITRATE. [Suspect]
     Active Substance: SILDENAFIL CITRATE
     Dosage: 2 DOSAGE FORM (TOOK A 100MG TAB AND TOOK ANOTHER 100MG TAB)

REACTIONS (4)
  - Headache [Unknown]
  - Intentional overdose [Unknown]
  - Drug ineffective [Unknown]
  - Intentional product misuse [Unknown]
